FAERS Safety Report 12839272 (Version 1)
Quarter: 2016Q4

REPORT INFORMATION
  Report Type: Spontaneous
  Country: US (occurrence: US)
  Receive Date: 20161010
  Receipt Date: 20161010
  Transmission Date: 20170207
  Serious: No
  Sender: FDA-Public Use
  Company Number: None

PATIENT
  Age: 60 Year
  Sex: Female
  Weight: 90 kg

DRUGS (19)
  1. LOPRESSOR [Concomitant]
     Active Substance: METOPROLOL TARTRATE
  2. ZANTAC [Concomitant]
     Active Substance: RANITIDINE HYDROCHLORIDE
  3. VITAMIN D3 [Concomitant]
     Active Substance: CHOLECALCIFEROL
  4. COLCRYS [Concomitant]
     Active Substance: COLCHICINE
  5. MELOXICAM. [Concomitant]
     Active Substance: MELOXICAM
  6. VITAMIN C [Concomitant]
     Active Substance: ASCORBIC ACID
  7. NEURONTIN [Concomitant]
     Active Substance: GABAPENTIN
  8. CYMBALTA [Concomitant]
     Active Substance: DULOXETINE HYDROCHLORIDE
  9. PRILOSEC [Concomitant]
     Active Substance: OMEPRAZOLE MAGNESIUM
  10. PROBENECID. [Suspect]
     Active Substance: PROBENECID
     Indication: GOUT
     Dosage: ?          QUANTITY:5 TABLET(S);?
     Route: 048
     Dates: start: 20160302, end: 20160306
  11. ALLOPURINOL. [Concomitant]
     Active Substance: ALLOPURINOL
  12. MELATONIN [Concomitant]
     Active Substance: MELATONIN
  13. ATIVAN [Concomitant]
     Active Substance: LORAZEPAM
  14. ADULT MULTIVITAMIN/MINERAL SUPPLEMENT [Concomitant]
  15. FLEXERIL [Concomitant]
     Active Substance: CYCLOBENZAPRINE HYDROCHLORIDE
  16. ZOCOR [Concomitant]
     Active Substance: SIMVASTATIN
  17. ACETAMINOPHEN. [Concomitant]
     Active Substance: ACETAMINOPHEN
  18. ELAVIL [Concomitant]
     Active Substance: AMITRIPTYLINE HYDROCHLORIDE
  19. PERICOLACE [Concomitant]

REACTIONS (3)
  - Hypoaesthesia [None]
  - Chromaturia [None]
  - Paraesthesia [None]

NARRATIVE: CASE EVENT DATE: 20160302
